FAERS Safety Report 8005863-9 (Version None)
Quarter: 2011Q4

REPORT INFORMATION
  Report Type: 
  Country: None (occurrence: None)
  Receive Date: 20111223
  Receipt Date: 20111219
  Transmission Date: 20120403
  Serious: Yes (Life-Threatening, Hospitalization)
  Sender: FDA-Public Use
  Company Number: UA-ASTRAZENECA-2011SE76697

PATIENT
  Age: 73 Year
  Sex: Male

DRUGS (5)
  1. NEBIVOLOL HCL [Concomitant]
     Indication: HYPERTENSION
  2. ZOLADEX [Suspect]
     Indication: PROSTATE CANCER
     Route: 058
     Dates: start: 20111206
  3. RANOPROST [Concomitant]
  4. CASODEX [Suspect]
     Indication: PROSTATE CANCER
     Route: 048
     Dates: start: 20111201
  5. PUMPAN [Concomitant]

REACTIONS (5)
  - HYPERTENSION [None]
  - ANGINA UNSTABLE [None]
  - ARRHYTHMIA [None]
  - MALAISE [None]
  - MYOCARDIAL INFARCTION [None]
